FAERS Safety Report 11127934 (Version 1)
Quarter: 2015Q2

REPORT INFORMATION
  Report Type: Other
  Country: GB (occurrence: GB)
  Receive Date: 20150521
  Receipt Date: 20150521
  Transmission Date: 20150821
  Serious: Yes (Other)
  Sender: FDA-Public Use
  Company Number: GB-MYLANLABS-2015M1015638

PATIENT

DRUGS (9)
  1. ASPIRIN                            /00002701/ [Concomitant]
     Active Substance: ASPIRIN
     Dosage: 1 DF, QD
     Dates: start: 20150422, end: 20150422
  2. ISOTRETINOIN [Concomitant]
     Active Substance: ISOTRETINOIN
     Dosage: 1 DF, UNK (APPLY 3 TIMES WEEKLY TO SUN SPOTS AS REQUIRED)
     Route: 061
     Dates: start: 20121102
  3. CLOPIDOGREL [Concomitant]
     Active Substance: CLOPIDOGREL BISULFATE
     Dosage: 1 DF, QD
     Dates: start: 20020701, end: 20150422
  4. EPIPEN [Concomitant]
     Active Substance: EPINEPHRINE
     Dosage: UNK
     Dates: start: 20060928
  5. GLYCERYL TRINITRATE [Concomitant]
     Active Substance: NITROGLYCERIN
     Indication: CHEST PAIN
     Dosage: 2 DF, UNK (2 PUFFS)
     Route: 060
     Dates: start: 20070813
  6. DIPYRIDAMOLE. [Suspect]
     Active Substance: DIPYRIDAMOLE
     Dosage: UNK
     Dates: start: 20150422
  7. NITROFURANTOIN. [Concomitant]
     Active Substance: NITROFURANTOIN
     Dosage: 1 DF, QID
     Dates: start: 20150227, end: 20150306
  8. ROSUVASTATIN [Concomitant]
     Active Substance: ROSUVASTATIN
     Dosage: 1 DF, QD
     Dates: start: 20050616
  9. CEFALEXIN [Concomitant]
     Active Substance: CEPHALEXIN
     Dosage: 1 DF, TID
     Dates: start: 20150216, end: 20150223

REACTIONS (1)
  - Hallucination, visual [Recovered/Resolved]

NARRATIVE: CASE EVENT DATE: 20150427
